FAERS Safety Report 6886780-4 (Version None)
Quarter: 2010Q3

REPORT INFORMATION
  Report Type: 
  Country: None (occurrence: None)
  Receive Date: 20100730
  Receipt Date: 20100721
  Transmission Date: 20110219
  Serious: Yes (Other)
  Sender: FDA-Public Use
  Company Number: JP-PFIZER INC-2010083329

PATIENT
  Age: 40 Year
  Sex: Male

DRUGS (1)
  1. NORVASC [Suspect]
     Indication: HYPERTENSION
     Dosage: 20 MG DAILY
     Route: 048
     Dates: start: 20100401

REACTIONS (3)
  - BLOOD PRESSURE INCREASED [None]
  - HYPOKALAEMIA [None]
  - LIVER FUNCTION TEST ABNORMAL [None]
